FAERS Safety Report 16433074 (Version 4)
Quarter: 2019Q3

REPORT INFORMATION
  Report Type: Report from Study
  Country: GT (occurrence: GT)
  Receive Date: 20190614
  Receipt Date: 20190712
  Transmission Date: 20191004
  Serious: Yes (Other)
  Sender: FDA-Public Use
  Company Number: PHHY2019GT027713

PATIENT
  Age: 45 Year
  Sex: Female
  Weight: 81.63 kg

DRUGS (1)
  1. GILENYA [Suspect]
     Active Substance: FINGOLIMOD HYDROCHLORIDE
     Indication: PRODUCT USED FOR UNKNOWN INDICATION
     Dosage: UNK
     Route: 065

REACTIONS (9)
  - Head injury [Unknown]
  - Retinal disorder [Unknown]
  - Ocular discomfort [Unknown]
  - Retinal vascular disorder [Unknown]
  - Pain in extremity [Recovered/Resolved]
  - Electroencephalogram abnormal [Unknown]
  - Fall [Unknown]
  - Loss of consciousness [Unknown]
  - Peripheral swelling [Recovered/Resolved]
